FAERS Safety Report 25633496 (Version 1)
Quarter: 2025Q3

REPORT INFORMATION
  Report Type: Spontaneous
  Country: EU (occurrence: EU)
  Receive Date: 20250801
  Receipt Date: 20250801
  Transmission Date: 20251021
  Serious: Yes (Hospitalization)
  Sender: RANBAXY
  Company Number: EU-SUN PHARMACEUTICAL INDUSTRIES LTD-2025RR-519561

PATIENT
  Age: 1 Day
  Sex: Male
  Weight: 3.045 kg

DRUGS (4)
  1. CITALOPRAM [Suspect]
     Active Substance: CITALOPRAM
     Indication: Bipolar disorder
     Dosage: 40 MILLIGRAM, DAILY
     Route: 064
     Dates: start: 20240627, end: 20250328
  2. LAMOTRIGINE [Suspect]
     Active Substance: LAMOTRIGINE
     Indication: Bipolar disorder
     Dosage: 400 MILLIGRAM, DAILY
     Route: 064
     Dates: start: 20240627, end: 20250328
  3. OXAZEPAM [Suspect]
     Active Substance: OXAZEPAM
     Indication: Bipolar disorder
     Dosage: 50 MILLIGRAM, DAILY
     Route: 064
     Dates: start: 20240627, end: 20250328
  4. LEVOTHYROXINE [Suspect]
     Active Substance: LEVOTHYROXINE
     Indication: Bipolar disorder
     Dosage: 75 MCG, DAILY
     Route: 064
     Dates: start: 20240627, end: 20250328

REACTIONS (3)
  - Tachypnoea [Not Recovered/Not Resolved]
  - Agitation [Not Recovered/Not Resolved]
  - Maternal exposure during pregnancy [Recovered/Resolved]

NARRATIVE: CASE EVENT DATE: 20250329
